FAERS Safety Report 9588950 (Version 2)
Quarter: 2013Q4

REPORT INFORMATION
  Report Type: Spontaneous
  Country: US (occurrence: US)
  Receive Date: 20131003
  Receipt Date: 20131003
  Transmission Date: 20140711
  Serious: Yes (Hospitalization)
  Sender: FDA-Public Use
  Company Number: US-B.I. PHARMACEUTICALS,INC./RIDGEFIELD-2013-BI-12158BP

PATIENT
  Age: 75 Year
  Sex: Male
  Weight: 65.77 kg

DRUGS (7)
  1. PRADAXA [Suspect]
     Indication: ANTICOAGULANT THERAPY
     Dosage: 300 MG
     Route: 048
     Dates: start: 20110509, end: 20111203
  2. PRADAXA [Suspect]
     Indication: TRANSIENT ISCHAEMIC ATTACK
  3. PRADAXA [Suspect]
     Indication: VISUAL ACUITY REDUCED
  4. PRAVASTATIN [Concomitant]
     Indication: BLOOD CHOLESTEROL INCREASED
     Dosage: 80 MG
     Route: 048
  5. ECOTRIN [Concomitant]
     Indication: ANTICOAGULANT THERAPY
     Dosage: 162 MG
     Route: 048
  6. ECOTRIN [Concomitant]
     Indication: TRANSIENT ISCHAEMIC ATTACK
  7. METOPROLOL ER [Concomitant]
     Indication: HYPERTENSION
     Dosage: 50 MG
     Route: 048

REACTIONS (3)
  - Cerebral haemorrhage [Unknown]
  - Subdural haematoma [Unknown]
  - Toxicity to various agents [Unknown]
